FAERS Safety Report 5232071-7 (Version None)
Quarter: 2007Q1

REPORT INFORMATION
  Report Type: 
  Country: None (occurrence: None)
  Receive Date: 20061201
  Receipt Date: 20060829
  Transmission Date: 20070707
  Serious: No
  Sender: FDA-Public Use
  Company Number: US200608006622

PATIENT
  Age: 46 Year
  Sex: Male

DRUGS (4)
  1. CYMBALTA [Suspect]
     Indication: DEPRESSION
     Dosage: 20 MG, 2/D
     Dates: start: 20060701
  2. AMBIEN [Concomitant]
  3. LORAZEPAM [Concomitant]
  4. SEROQUEL [Concomitant]

REACTIONS (7)
  - CHEST PAIN [None]
  - CONFUSIONAL STATE [None]
  - DISTURBANCE IN ATTENTION [None]
  - DIZZINESS [None]
  - HYPERHIDROSIS [None]
  - PARAESTHESIA [None]
  - PSYCHOMOTOR SKILLS IMPAIRED [None]
